FAERS Safety Report 5352589-6 (Version None)
Quarter: 2007Q2

REPORT INFORMATION
  Report Type: 
  Country: None (occurrence: None)
  Receive Date: 20070611
  Receipt Date: 20070606
  Transmission Date: 20071010
  Serious: Yes (Life-Threatening)
  Sender: FDA-Public Use
  Company Number: JP-SANOFI-SYNTHELABO-F01200700717

PATIENT
  Sex: Female
  Weight: 57.3 kg

DRUGS (5)
  1. MYONAL [Concomitant]
     Dosage: 100 MG
     Route: 048
     Dates: start: 20060424
  2. HI-Z [Concomitant]
     Dosage: 50 MG
     Route: 048
     Dates: start: 20060424
  3. CLOPIDOGREL [Suspect]
     Indication: LACUNAR INFARCTION
     Dosage: 50 MG
     Route: 048
     Dates: start: 20061106, end: 20070228
  4. CLOPIDOGREL [Suspect]
     Dosage: 50 MG
     Route: 048
     Dates: start: 20070314, end: 20070321
  5. CLOPIDOGREL [Suspect]
     Dosage: 25 MG
     Route: 048
     Dates: start: 20070323, end: 20070426

REACTIONS (3)
  - ABDOMINAL PAIN UPPER [None]
  - EPILEPSY [None]
  - INSOMNIA [None]
